FAERS Safety Report 15379130 (Version 1)
Quarter: 2018Q3

REPORT INFORMATION
  Report Type: Spontaneous
  Country: US (occurrence: US)
  Receive Date: 20180906
  Receipt Date: 20180906
  Transmission Date: 20181010
  Serious: Yes (Life-Threatening, Hospitalization, Other)
  Sender: FDA-Public Use
  Company Number: None

PATIENT
  Age: 78 Year
  Sex: Male
  Weight: 83.92 kg

DRUGS (7)
  1. METOPOLTAR [Concomitant]
  2. VITAMIN D [Concomitant]
     Active Substance: CHOLECALCIFEROL
  3. ATORVASTAIN [Concomitant]
     Active Substance: ATORVASTATIN
  4. LEVOTAROXIN [Concomitant]
  5. VALSARTAN 80MG [Suspect]
     Active Substance: VALSARTAN
     Indication: HYPERTENSION
     Dosage: ?          QUANTITY:1@DAY;?
     Route: 048
  6. ASPIRIN. [Concomitant]
     Active Substance: ASPIRIN
  7. HYDROCHLORAT [Concomitant]

REACTIONS (3)
  - Renal disorder [None]
  - Drug ineffective [None]
  - Feeling abnormal [None]
